FAERS Safety Report 20060460 (Version 1)
Quarter: 2021Q4

REPORT INFORMATION
  Report Type: Spontaneous
  Country: US (occurrence: US)
  Receive Date: 20211112
  Receipt Date: 20211112
  Transmission Date: 20220303
  Serious: No
  Sender: FDA-Public Use
  Company Number: US-BEH-2021138189

PATIENT
  Age: 68 Year
  Sex: Male

DRUGS (10)
  1. HIZENTRA [Suspect]
     Active Substance: HUMAN IMMUNOGLOBULIN G
     Indication: Chronic inflammatory demyelinating polyradiculoneuropathy
     Dosage: 28 GRAM, QW
     Route: 058
     Dates: start: 20211107
  2. HIZENTRA [Suspect]
     Active Substance: HUMAN IMMUNOGLOBULIN G
     Dosage: 28 GRAM, QW
     Route: 058
     Dates: start: 202110
  3. HIZENTRA [Suspect]
     Active Substance: HUMAN IMMUNOGLOBULIN G
     Dosage: 28 GRAM, QW
     Route: 058
     Dates: start: 20211107
  4. HIZENTRA [Suspect]
     Active Substance: HUMAN IMMUNOGLOBULIN G
     Dosage: 28 GRAM, QW
     Route: 058
     Dates: start: 20211107
  5. LIDOCAINE [Concomitant]
     Active Substance: LIDOCAINE
  6. HYDROCODONE [Concomitant]
     Active Substance: HYDROCODONE
  7. SUMATRIPTAN [Concomitant]
     Active Substance: SUMATRIPTAN
  8. BENADRYL [Concomitant]
     Active Substance: DIPHENHYDRAMINE HYDROCHLORIDE
     Indication: Premedication
  9. TYLENOL [Concomitant]
     Active Substance: ACETAMINOPHEN
     Indication: Premedication
  10. CANNABIDIOL [Concomitant]
     Active Substance: CANNABIDIOL

REACTIONS (8)
  - Infusion site pruritus [Recovered/Resolved]
  - Infusion site pain [Recovered/Resolved]
  - Erythema [Recovered/Resolved]
  - Swelling [Recovered/Resolved]
  - Infusion site warmth [Recovered/Resolved]
  - Infusion site erythema [Recovered/Resolved]
  - Infusion site extravasation [Recovered/Resolved]
  - Feeling hot [Recovered/Resolved]

NARRATIVE: CASE EVENT DATE: 20211001
